FAERS Safety Report 10225068 (Version 1)
Quarter: 2014Q2

REPORT INFORMATION
  Report Type: Report from Study
  Country: MX (occurrence: MX)
  Receive Date: 20140609
  Receipt Date: 20140609
  Transmission Date: 20141212
  Serious: No
  Sender: FDA-Public Use
  Company Number: PHHY2014MX070449

PATIENT
  Age: 55 Year
  Sex: Male

DRUGS (4)
  1. DIOVAN [Suspect]
     Indication: CARDIOMYOPATHY
     Dosage: 0.5 DF (80 MG), DAILY
     Route: 048
     Dates: start: 200706
  2. DIOVAN [Suspect]
     Indication: OFF LABEL USE
  3. ALDACTONE A [Concomitant]
     Dosage: 1 UKN, DAILY
  4. SELOKEN [Concomitant]
     Dosage: 2 UKN, DAILY

REACTIONS (3)
  - Arrhythmia [Not Recovered/Not Resolved]
  - Drug prescribing error [Not Recovered/Not Resolved]
  - Wrong technique in drug usage process [Not Recovered/Not Resolved]
